FAERS Safety Report 4892981-7 (Version None)
Quarter: 2005Q4

REPORT INFORMATION
  Report Type: 
  Country: None (occurrence: None)
  Receive Date: 20051223
  Receipt Date: 20050513
  Transmission Date: 20060501
  Serious: Yes (Other)
  Sender: FDA-Public Use
  Company Number: PHEH2005US04342

PATIENT
  Age: 23 Year
  Sex: Male
  Weight: 102 kg

DRUGS (6)
  1. CLOZARIL [Suspect]
     Indication: AGGRESSION
     Dosage: 200 MG, BID, ORAL
     Route: 048
     Dates: start: 19990101, end: 20050415
  2. DEPAKOTE [Concomitant]
  3. CHLORAL HYDRATE (CHLORAL HYDRATE) [Concomitant]
  4. CLONIDINE [Concomitant]
  5. MIRALAX [Concomitant]
  6. PROPRANOLOL [Concomitant]

REACTIONS (14)
  - AGRANULOCYTOSIS [None]
  - ALANINE AMINOTRANSFERASE INCREASED [None]
  - ASPARTATE AMINOTRANSFERASE INCREASED [None]
  - BAND NEUTROPHIL PERCENTAGE INCREASED [None]
  - BLOOD TRIGLYCERIDES INCREASED [None]
  - COUGH [None]
  - HAEMATOCRIT DECREASED [None]
  - HAEMOGLOBIN DECREASED [None]
  - LYMPHADENOPATHY [None]
  - MONOCYTE COUNT ABNORMAL [None]
  - NEUTROPHIL PERCENTAGE DECREASED [None]
  - PYREXIA [None]
  - RED BLOOD CELL COUNT DECREASED [None]
  - WHITE BLOOD CELL COUNT INCREASED [None]
